FAERS Safety Report 4380240-0 (Version None)
Quarter: 2004Q2

REPORT INFORMATION
  Report Type: 
  Country: None (occurrence: None)
  Receive Date: 20040616
  Receipt Date: 20040616
  Transmission Date: 20050107
  Serious: No
  Sender: FDA-Public Use
  Company Number: None

PATIENT
  Sex: Male
  Weight: 90 kg

DRUGS (10)
  1. ZOSYN [Suspect]
     Indication: PNEUMONIA
     Dosage: 4.5 GM DAILY IV
     Route: 042
     Dates: start: 20040606, end: 20040610
  2. ZOSYN [Suspect]
     Indication: SEPSIS
     Dosage: 4.5 GM DAILY IV
     Route: 042
     Dates: start: 20040606, end: 20040610
  3. VANCOMYCIN [Concomitant]
  4. PROTONIX [Concomitant]
  5. ALBUTEROL/IPRATROPIUM [Concomitant]
  6. EPINEPHRINE [Concomitant]
  7. DOPAMINE HCL [Concomitant]
  8. DOBUTAMINE [Concomitant]
  9. FENTANYL [Concomitant]
  10. LORAZEPAM [Concomitant]

REACTIONS (1)
  - PLATELET COUNT DECREASED [None]
